FAERS Safety Report 4570327-1 (Version None)
Quarter: 2005Q1

REPORT INFORMATION
  Report Type: 
  Country: None (occurrence: None)
  Receive Date: 20050204
  Receipt Date: 20041210
  Transmission Date: 20050727
  Serious: Yes (Life-Threatening, Hospitalization)
  Sender: FDA-Public Use
  Company Number: JP-ROCHE-388714

PATIENT
  Age: 80 Year
  Sex: Female

DRUGS (8)
  1. ANEXATE [Suspect]
     Indication: REVERSAL OF SEDATION
     Route: 042
     Dates: start: 20041013, end: 20041013
  2. DORMICUM [Concomitant]
     Indication: SEDATION
  3. LEPETAN [Concomitant]
  4. UNKNOWN DRUG [Concomitant]
     Dosage: DRUG NAME REPORTED AS ^GLYMACKEN/CONCENTRATED GLYCERIN/FRUCTOSE^.
  5. NICARDIPINE HCL [Concomitant]
  6. GASTER (JAPAN) [Concomitant]
  7. SOLITA-T3 [Concomitant]
  8. SODIUM CHLORIDE [Concomitant]

REACTIONS (1)
  - ANAPHYLACTIC SHOCK [None]
